FAERS Safety Report 19884997 (Version 1)
Quarter: 2021Q3

REPORT INFORMATION
  Report Type: Spontaneous
  Country: US (occurrence: US)
  Receive Date: 20210927
  Receipt Date: 20210927
  Transmission Date: 20211014
  Serious: Yes (Other)
  Sender: FDA-Public Use
  Company Number: None

PATIENT
  Age: 49 Year
  Sex: Female
  Weight: 99 kg

DRUGS (9)
  1. BUPROPION XL [Suspect]
     Active Substance: BUPROPION
     Indication: DEPRESSION
     Route: 048
     Dates: start: 20210106, end: 20210406
  2. GABAPENTIN 300MG [Concomitant]
     Active Substance: GABAPENTIN
  3. SPIRONOLACTONE 100MG [Concomitant]
     Active Substance: SPIRONOLACTONE
  4. ATORVASTATIN 80MG [Concomitant]
     Active Substance: ATORVASTATIN
  5. JARDIANCE [Concomitant]
     Active Substance: EMPAGLIFLOZIN
  6. FLOVENT HFA [Concomitant]
     Active Substance: FLUTICASONE PROPIONATE
  7. XOPENEX [Concomitant]
     Active Substance: LEVALBUTEROL HYDROCHLORIDE
  8. TRADJENTA [Concomitant]
     Active Substance: LINAGLIPTIN
  9. ALBUTEROL SULFATE. [Concomitant]
     Active Substance: ALBUTEROL SULFATE

REACTIONS (4)
  - Anger [None]
  - Irritability [None]
  - Product substitution issue [None]
  - Emotional disorder [None]

NARRATIVE: CASE EVENT DATE: 20210106
